FAERS Safety Report 15426629 (Version 1)
Quarter: 2018Q3

REPORT INFORMATION
  Report Type: Report from Study
  Country: US (occurrence: US)
  Receive Date: 20180925
  Receipt Date: 20180925
  Transmission Date: 20181010
  Serious: Yes (Death, Life-Threatening, Other)
  Sender: FDA-Public Use
  Company Number: US-TEVA-2018-US-957646

PATIENT
  Age: 58 Year
  Sex: Female

DRUGS (1)
  1. VERAPAMIL [Suspect]
     Active Substance: VERAPAMIL HYDROCHLORIDE
     Route: 065

REACTIONS (11)
  - Bradycardia [Unknown]
  - Depressed level of consciousness [Unknown]
  - Pneumonia aspiration [Unknown]
  - Coma [Unknown]
  - Respiratory depression [Unknown]
  - Metabolic acidosis [Unknown]
  - Hypotension [Unknown]
  - Atrioventricular block [Unknown]
  - Acute kidney injury [Unknown]
  - Toxicity to various agents [Fatal]
  - Pancreatitis [Unknown]
